FAERS Safety Report 5839247-6 (Version None)
Quarter: 2008Q3

REPORT INFORMATION
  Report Type: 
  Country: None (occurrence: None)
  Receive Date: 20080808
  Receipt Date: 20080729
  Transmission Date: 20090109
  Serious: Yes (Hospitalization, Other)
  Sender: FDA-Public Use
  Company Number: AR-PFIZER INC-2008060698

PATIENT
  Sex: Male
  Weight: 75 kg

DRUGS (6)
  1. CHANTIX [Suspect]
     Indication: SMOKING CESSATION THERAPY
     Route: 048
     Dates: start: 20080702, end: 20080717
  2. SINTROM [Concomitant]
  3. CARVEDILOL [Concomitant]
  4. METHYLDOPA [Concomitant]
  5. VALSARTAN [Concomitant]
  6. LIPITOR [Concomitant]

REACTIONS (1)
  - GASTRIC HAEMORRHAGE [None]
